FAERS Safety Report 10211390 (Version 7)
Quarter: 2015Q3

REPORT INFORMATION
  Report Type: Report from Study
  Country: US (occurrence: US)
  Receive Date: 20140602
  Receipt Date: 20150824
  Transmission Date: 20151125
  Serious: Yes (Other)
  Sender: FDA-Public Use
  Company Number: US-SA-2014SA024057

PATIENT
  Age: 71 Year
  Sex: Female

DRUGS (16)
  1. CALCIUM [Concomitant]
     Active Substance: CALCIUM
     Dosage: IN MORNING, SINCE MANY YEARS
  2. SOLU-MEDROL [Concomitant]
     Active Substance: METHYLPREDNISOLONE SODIUM SUCCINATE
     Indication: STEROID THERAPY
  3. MODAFINIL. [Concomitant]
     Active Substance: MODAFINIL
     Indication: FATIGUE
     Dosage: IN MORNING, SINCE MANY YEARS
  4. CYMBALTA [Concomitant]
     Active Substance: DULOXETINE HYDROCHLORIDE
     Indication: DEPRESSION
  5. CHONDROITIN SULFATE/GLUCOSAMINE [Concomitant]
     Dosage: MANY UPS
  6. BUMETANIDE. [Concomitant]
     Active Substance: BUMETANIDE
     Indication: OEDEMA PERIPHERAL
     Dosage: IN MORNING, SINCE MANY YEARS AND AT 2:00PM
  7. ANAGRELIDE [Concomitant]
     Active Substance: ANAGRELIDE
     Indication: PLATELET DISORDER
     Dosage: IN MORNING AND IN NIGHT
     Dates: start: 2013
  8. CLONAZEPAM. [Concomitant]
     Active Substance: CLONAZEPAM
     Indication: RESTLESS LEGS SYNDROME
     Dosage: AT 2:PM AND IN NIGHT
     Dates: start: 2013
  9. VITAMIN D3 [Concomitant]
     Active Substance: CHOLECALCIFEROL
  10. ASA [Concomitant]
     Active Substance: ASPIRIN
     Dosage: TAKING SINCE MAVY YEARS.
  11. AUBAGIO [Suspect]
     Active Substance: TERIFLUNOMIDE
     Indication: MULTIPLE SCLEROSIS
     Route: 048
     Dates: start: 201507
  12. AUBAGIO [Suspect]
     Active Substance: TERIFLUNOMIDE
     Indication: MULTIPLE SCLEROSIS
     Route: 048
     Dates: start: 20130216
  13. VESICARE [Concomitant]
     Active Substance: SOLIFENACIN SUCCINATE
     Indication: BLADDER DISORDER
     Dosage: IN MORNING, SINCE MANY YEARS
  14. BUPROPION. [Concomitant]
     Active Substance: BUPROPION
     Indication: DEPRESSION
     Dosage: IN MORNING, SINCE MANY YEARS
  15. ESGIC-PLUS [Concomitant]
     Active Substance: ACETAMINOPHEN\BUTALBITAL\CAFFEINE
  16. LEVOTHYROXINE. [Concomitant]
     Active Substance: LEVOTHYROXINE
     Indication: THYROID DISORDER
     Dosage: IN MORNING, SINCE MANY YEARS

REACTIONS (4)
  - Knee operation [Unknown]
  - Pruritus [Not Recovered/Not Resolved]
  - Product blister packaging issue [Unknown]
  - Unevaluable event [Unknown]

NARRATIVE: CASE EVENT DATE: 20130319
